FAERS Safety Report 23336095 (Version 2)
Quarter: 2024Q1

REPORT INFORMATION
  Report Type: Spontaneous
  Country: CN (occurrence: None)
  Receive Date: 20231225
  Receipt Date: 20240102
  Transmission Date: 20240410
  Serious: Yes (Other)
  Sender: FDA-Public Use
  Company Number: CN-ROCHE-3478172

PATIENT

DRUGS (6)
  1. GLOFITAMAB [Suspect]
     Active Substance: GLOFITAMAB
     Indication: Diffuse large B-cell lymphoma
     Route: 065
  2. RITUXIMAB [Suspect]
     Active Substance: RITUXIMAB
     Indication: Diffuse large B-cell lymphoma
     Route: 065
  3. CYCLOPHOSPHAMIDE [Concomitant]
     Active Substance: CYCLOPHOSPHAMIDE
  4. DOXORUBICIN [Concomitant]
     Active Substance: DOXORUBICIN
  5. VINCRISTINE [Concomitant]
     Active Substance: VINCRISTINE
  6. PREDNISONE [Concomitant]
     Active Substance: PREDNISONE

REACTIONS (3)
  - Neutrophil count decreased [Unknown]
  - Febrile neutropenia [Unknown]
  - Cytokine release syndrome [Unknown]
